FAERS Safety Report 9845968 (Version 5)
Quarter: 2015Q1

REPORT INFORMATION
  Report Type: Spontaneous
  Country: US (occurrence: US)
  Receive Date: 20140127
  Receipt Date: 20150224
  Transmission Date: 20150721
  Serious: Yes (Hospitalization)
  Sender: FDA-Public Use
  Company Number: US-BAYER-2014-010217

PATIENT
  Age: 25 Year
  Sex: Female
  Weight: 50 kg

DRUGS (2)
  1. MIRENA [Suspect]
     Active Substance: LEVONORGESTREL
     Indication: CONTRACEPTION
     Dosage: 20 MCG/24HR, CONT
     Route: 015
     Dates: start: 20060912, end: 20110106
  2. PRENATAL VITAMINS [Concomitant]
     Active Substance: VITAMINS

REACTIONS (18)
  - Genital discomfort [None]
  - Anxiety [None]
  - Drug ineffective [None]
  - Uterine perforation [None]
  - Bladder perforation [None]
  - Abdominal pain lower [None]
  - Ectopic pregnancy with contraceptive device [None]
  - Medical device complication [None]
  - Emotional distress [None]
  - Genital haemorrhage [None]
  - Internal injury [None]
  - Pelvic pain [None]
  - Injury [None]
  - Device difficult to use [None]
  - Depression [None]
  - Fear [None]
  - Menstrual disorder [None]
  - Medical device discomfort [None]

NARRATIVE: CASE EVENT DATE: 2009
